FAERS Safety Report 6059528-3 (Version None)
Quarter: 2009Q1

REPORT INFORMATION
  Report Type: 
  Country: None (occurrence: None)
  Receive Date: 20090130
  Receipt Date: 20090119
  Transmission Date: 20090719
  Serious: No
  Sender: FDA-Public Use
  Company Number: CA-ELI_LILLY_AND_COMPANY-CA200811000948

PATIENT
  Sex: Female

DRUGS (3)
  1. STRATTERA [Suspect]
     Indication: ATTENTION DEFICIT/HYPERACTIVITY DISORDER
     Dosage: 10 MG, DAILY (1/D)
     Route: 065
     Dates: start: 20081021, end: 20081030
  2. STRATTERA [Suspect]
     Dosage: 18 MG, DAILY (1/D)
     Route: 065
     Dates: start: 20081031
  3. STRATTERA [Suspect]
     Dosage: 25 MG, UNKNOWN
     Route: 065

REACTIONS (1)
  - BREAST MASS [None]
